FAERS Safety Report 6182180-3 (Version None)
Quarter: 2009Q2

REPORT INFORMATION
  Report Type: 
  Country: None (occurrence: None)
  Receive Date: 20090507
  Receipt Date: 20090428
  Transmission Date: 20091009
  Serious: Yes (Hospitalization, Other)
  Sender: FDA-Public Use
  Company Number: PHHY2009GB06429

PATIENT
  Sex: Male

DRUGS (6)
  1. CLOZARIL [Suspect]
     Indication: SCHIZOPHRENIA
     Dosage: 400 MG
     Route: 048
     Dates: start: 20070418, end: 20090228
  2. VALPROATE SODIUM [Concomitant]
     Indication: PSYCHOTIC DISORDER
     Dosage: 400 MG, BID
     Route: 048
  3. TRAZODONE HCL [Concomitant]
     Indication: DEPRESSION
     Dosage: 200 MG, QHS
     Route: 048
  4. RANITIDINE [Concomitant]
     Indication: ALCOHOL ABUSE
     Dosage: 150 MG/DAY
     Route: 048
  5. VITAMIN B COMPLEX CAP [Concomitant]
     Indication: ALCOHOL ABUSE
     Dosage: BD
     Route: 048
  6. THIAMINE HCL [Concomitant]
     Indication: ALCOHOL ABUSE
     Dosage: 100 UG, BID
     Route: 048

REACTIONS (7)
  - ASTHENIA [None]
  - FALL [None]
  - HIP ARTHROPLASTY [None]
  - NEUTROPHIL COUNT DECREASED [None]
  - PLATELET COUNT DECREASED [None]
  - THROMBOCYTOPENIA [None]
  - WHITE BLOOD CELL COUNT DECREASED [None]
